FAERS Safety Report 17528470 (Version 2)
Quarter: 2022Q1

REPORT INFORMATION
  Report Type: Spontaneous
  Country: GB (occurrence: GB)
  Receive Date: 20200312
  Receipt Date: 20220209
  Transmission Date: 20220423
  Serious: Yes (Death, Hospitalization, Other)
  Sender: FDA-Public Use
  Company Number: GB-MHRA-ADR 24470107

PATIENT
  Age: 88 Year
  Sex: Female
  Weight: 63 kg

DRUGS (2)
  1. CELECOXIB [Interacting]
     Active Substance: CELECOXIB
     Indication: Product used for unknown indication
     Dosage: 200 MILLIGRAM, ONCE A DAY
     Route: 048
     Dates: start: 20190410
  2. RIVAROXABAN [Interacting]
     Active Substance: RIVAROXABAN
     Indication: Atrial fibrillation
     Dosage: 15 MILLIGRAM, ONCE A DAY
     Route: 065

REACTIONS (2)
  - Haemorrhagic stroke [Fatal]
  - Drug interaction [Unknown]
